FAERS Safety Report 20835997 (Version 3)
Quarter: 2022Q2

REPORT INFORMATION
  Report Type: Spontaneous
  Country: ES (occurrence: ES)
  Receive Date: 20220516
  Receipt Date: 20220628
  Transmission Date: 20220720
  Serious: Yes (Hospitalization, Other)
  Sender: FDA-Public Use
  Company Number: ES-CELLTRION INC.-2022ES006641

PATIENT

DRUGS (9)
  1. RITUXIMAB [Suspect]
     Active Substance: RITUXIMAB
     Indication: Follicular lymphoma stage IV
     Dosage: 6 CYCLES OF CHEMOIMMUNOTHERAPY R-CHOP SCHEDULE UNTIL JULY 2020
  2. RITUXIMAB [Suspect]
     Active Substance: RITUXIMAB
     Indication: Lymphoproliferative disorder
     Dosage: 375 MG/M2 IN MONOTHERAPY EVERY 2 MONTHS (375 MG/M2, Q2MO)
     Route: 065
     Dates: start: 202010
  3. RITUXIMAB [Suspect]
     Active Substance: RITUXIMAB
     Indication: B-cell lymphoma
     Dosage: 375 MG/M2 IN MONOTHERAPY EVERY 2 MONTHS
     Dates: start: 20210527
  4. RITUXIMAB [Suspect]
     Active Substance: RITUXIMAB
     Dosage: 375 MG/M2 IN MONOTHERAPY EVERY 2 MONTHS
     Dates: start: 20210726
  5. RITUXIMAB [Suspect]
     Active Substance: RITUXIMAB
     Dosage: UNK, CYCLIC(FIFTH CYCLE)
     Dates: start: 20210726
  6. RITUXIMAB [Suspect]
     Active Substance: RITUXIMAB
     Dosage: 375 MG/M2(EVERY 2 MONTHS)
     Route: 065
     Dates: start: 202010, end: 20210726
  7. RITUXIMAB [Suspect]
     Active Substance: RITUXIMAB
     Dosage: UNK
     Route: 065
     Dates: start: 202007
  8. CYCLOPHOSPHAMIDE\DOXORUBICIN\PREDNISONE\VINCRISTINE [Suspect]
     Active Substance: CYCLOPHOSPHAMIDE\DOXORUBICIN\PREDNISONE\VINCRISTINE
     Indication: Follicular lymphoma stage IV
     Dosage: 6 CYCLES OF CHEMOIMMUNOTHERAPY R-CHOP SCHEDULE UNTIL JULY 2020
  9. ELASOMERAN [Concomitant]
     Active Substance: ELASOMERAN
     Indication: Immunisation
     Dosage: UNK
     Dates: start: 20210930

REACTIONS (4)
  - Breakthrough COVID-19 [Recovered/Resolved]
  - Immunodeficiency [Unknown]
  - COVID-19 [Recovered/Resolved]
  - Hypogammaglobulinaemia [Unknown]

NARRATIVE: CASE EVENT DATE: 20210802
